FAERS Safety Report 11130791 (Version 1)
Quarter: 2015Q2

REPORT INFORMATION
  Report Type: Spontaneous
  Country: US (occurrence: US)
  Receive Date: 20150522
  Receipt Date: 20150522
  Transmission Date: 20150821
  Serious: Yes (Other)
  Sender: FDA-Public Use
  Company Number: US-TEVA-564716ACC

PATIENT
  Age: 30 Year
  Sex: Female
  Weight: 93.07 kg

DRUGS (1)
  1. PARAGARD T 380A [Suspect]
     Active Substance: COPPER
     Indication: CONTRACEPTION
     Route: 015
     Dates: start: 201404

REACTIONS (2)
  - Cervical dysplasia [Not Recovered/Not Resolved]
  - Smear cervix abnormal [Not Recovered/Not Resolved]

NARRATIVE: CASE EVENT DATE: 201503
